FAERS Safety Report 10439972 (Version 1)
Quarter: 2014Q3

REPORT INFORMATION
  Report Type: Spontaneous
  Country: US (occurrence: US)
  Receive Date: 20140908
  Receipt Date: 20140908
  Transmission Date: 20150326
  Serious: No
  Sender: FDA-Public Use
  Company Number: US-BRISTOL-MYERS SQUIBB COMPANY-20046595

PATIENT
  Sex: Male

DRUGS (1)
  1. ABILIFY [Suspect]
     Active Substance: ARIPIPRAZOLE
     Indication: BIPOLAR DISORDER
     Dosage: INTER AND RESUMED ON UNK DATE?STOPPED ON UNK DATE

REACTIONS (4)
  - Tension [Not Recovered/Not Resolved]
  - Akathisia [Recovered/Resolved]
  - Irritability [Not Recovered/Not Resolved]
  - Extrapyramidal disorder [Recovered/Resolved]
